FAERS Safety Report 25117077 (Version 2)
Quarter: 2025Q2

REPORT INFORMATION
  Report Type: Report from Study
  Country: US (occurrence: US)
  Receive Date: 20250325
  Receipt Date: 20250611
  Transmission Date: 20250717
  Serious: Yes (Hospitalization, Other)
  Sender: TAKEDA
  Company Number: US-TAKEDA-2025TUS020794

PATIENT
  Sex: Female

DRUGS (8)
  1. PONATINIB [Suspect]
     Active Substance: PONATINIB
     Indication: Chronic myeloid leukaemia
     Dosage: 30 MILLIGRAM, QD
     Dates: start: 20250219
  2. PONATINIB [Suspect]
     Active Substance: PONATINIB
     Dosage: 15 MILLIGRAM, QD
  3. VITAMIN D [Concomitant]
     Active Substance: VITAMIN D NOS
  4. VITAMIN C [Concomitant]
     Active Substance: ASCORBIC ACID
  5. FISH OIL [Concomitant]
     Active Substance: FISH OIL
  6. CLARITIN [Concomitant]
     Active Substance: LORATADINE
  7. TYLENOL [Concomitant]
     Active Substance: ACETAMINOPHEN
  8. VALTREX [Concomitant]
     Active Substance: VALACYCLOVIR HYDROCHLORIDE

REACTIONS (8)
  - Febrile infection [Unknown]
  - Ocular toxicity [Unknown]
  - White blood cell count decreased [Unknown]
  - Back pain [Unknown]
  - Headache [Unknown]
  - Oedema peripheral [Unknown]
  - Arthralgia [Unknown]
  - Fluid retention [Unknown]
